FAERS Safety Report 23831847 (Version 1)
Quarter: 2024Q2

REPORT INFORMATION
  Report Type: Spontaneous
  Country: RO (occurrence: RO)
  Receive Date: 20240508
  Receipt Date: 20240508
  Transmission Date: 20240715
  Serious: Yes (Other)
  Sender: FDA-Public Use
  Company Number: RO-AMGEN-ROUSP2024082384

PATIENT
  Age: 54 Year

DRUGS (5)
  1. OXALIPLATIN [Suspect]
     Active Substance: OXALIPLATIN
     Indication: Colorectal cancer metastatic
     Dosage: UNK?ROUTE: INTRAVENOUS
     Dates: start: 202310
  2. LEUCOVORIN [Suspect]
     Active Substance: LEUCOVORIN\LEUCOVORIN CALCIUM
     Indication: Colorectal cancer metastatic
     Dosage: UNK?ROUTE: INTRAVENOUS
     Dates: start: 202310
  3. FLUOROURACIL [Suspect]
     Active Substance: FLUOROURACIL
     Indication: Colorectal cancer metastatic
     Dosage: UNK?ROUTE: INTRAVENOUS
     Dates: start: 202310
  4. VECTIBIX [Suspect]
     Active Substance: PANITUMUMAB
     Indication: Colorectal cancer metastatic
     Dosage: UNK, (6MG/BODYWEIGHT)?FORM: SOLUTION FOR INJECTION ?ROUTE: INTRAVENOUS
     Dates: start: 202310
  5. DOXYCYCLINE [Concomitant]
     Active Substance: DOXYCYCLINE
     Indication: Prophylaxis
     Dosage: 100 MILLIGRAM, QD, FROM CYCLE 1?FORM: TABLET
     Dates: start: 202310

REACTIONS (2)
  - Neurotoxicity [Unknown]
  - Skin toxicity [Recovering/Resolving]
